FAERS Safety Report 20209882 (Version 1)
Quarter: 2021Q4

REPORT INFORMATION
  Report Type: Spontaneous
  Country: US (occurrence: US)
  Receive Date: 20211221
  Receipt Date: 20211221
  Transmission Date: 20220303
  Serious: Yes (Death, Hospitalization)
  Sender: FDA-Public Use
  Company Number: US-JNJFOC-20211219314

PATIENT
  Age: 54 Year
  Sex: Female
  Weight: 89 kg

DRUGS (2)
  1. ACETAMINOPHEN [Suspect]
     Active Substance: ACETAMINOPHEN
     Indication: Suicide attempt
     Dosage: TOTAL SINGLE DOSE OF 25000 MG OF ACETAMINOPHEN (MORE THAN 50 TABLETS) ON 17-JAN-2003 AT 08:00
     Route: 065
     Dates: start: 20030117, end: 20030117
  2. TEGRETOL [Concomitant]
     Active Substance: CARBAMAZEPINE
     Indication: Product used for unknown indication
     Dosage: 800 MG FOR YEARS
     Route: 065
     Dates: end: 20030101

REACTIONS (8)
  - Completed suicide [Fatal]
  - Arrhythmia [Fatal]
  - Product administration error [Fatal]
  - Acute hepatic failure [Fatal]
  - Multiple organ dysfunction syndrome [Fatal]
  - Renal failure [Fatal]
  - Gastrointestinal haemorrhage [Fatal]
  - Intentional overdose [Fatal]

NARRATIVE: CASE EVENT DATE: 20030125
